FAERS Safety Report 7965939-9 (Version None)
Quarter: 2011Q4

REPORT INFORMATION
  Report Type: 
  Country: None (occurrence: None)
  Receive Date: 20111208
  Receipt Date: 20111205
  Transmission Date: 20120403
  Serious: No
  Sender: FDA-Public Use
  Company Number: US-PFIZER INC-2011297427

PATIENT
  Age: 67 Year
  Sex: Female
  Weight: 60.771 kg

DRUGS (1)
  1. NEURONTIN [Suspect]
     Indication: MYALGIA
     Dosage: 100 MG, 3X/DAY
     Dates: start: 20111021, end: 20110101

REACTIONS (6)
  - MYALGIA [None]
  - ARTHROPATHY [None]
  - DISTURBANCE IN ATTENTION [None]
  - MEMORY IMPAIRMENT [None]
  - LIGAMENT SPRAIN [None]
  - DEPRESSION [None]
